FAERS Safety Report 4263809-3 (Version None)
Quarter: 2004Q1

REPORT INFORMATION
  Report Type: 
  Country: None (occurrence: None)
  Receive Date: 20040106
  Receipt Date: 20031230
  Transmission Date: 20041129
  Serious: Yes (Hospitalization, Other)
  Sender: FDA-Public Use
  Company Number: 200320801US

PATIENT
  Sex: Female

DRUGS (8)
  1. TAXOTERE [Suspect]
     Indication: BREAST CANCER
     Route: 042
     Dates: start: 20031022, end: 20031204
  2. GEMCITABINE [Suspect]
     Indication: BREAST CANCER
     Route: 042
     Dates: start: 20031022, end: 20031210
  3. VASOTEC [Concomitant]
  4. PROPRANOLOL [Concomitant]
  5. MECLIZINE [Concomitant]
  6. ZOLOFT [Concomitant]
  7. FOLIC ACID [Concomitant]
  8. QUININE [Concomitant]

REACTIONS (11)
  - ASTHENIA [None]
  - BLOOD CREATININE INCREASED [None]
  - CHILLS [None]
  - EPISTAXIS [None]
  - FEBRILE NEUTROPENIA [None]
  - MARKEDLY REDUCED DIETARY INTAKE [None]
  - METASTASES TO BONE [None]
  - MUCOSAL INFLAMMATION [None]
  - NEUTROPENIA [None]
  - PANCYTOPENIA [None]
  - PYREXIA [None]
